FAERS Safety Report 6786710-X (Version None)
Quarter: 2010Q2

REPORT INFORMATION
  Report Type: 
  Country: None (occurrence: None)
  Receive Date: 20100623
  Receipt Date: 20100615
  Transmission Date: 20101027
  Serious: Yes (Hospitalization)
  Sender: FDA-Public Use
  Company Number: DE-BAYER-201020342GPV

PATIENT
  Age: 61 Year
  Sex: Female

DRUGS (1)
  1. PRIMOVIST [Suspect]
     Indication: NUCLEAR MAGNETIC RESONANCE IMAGING
     Route: 042
     Dates: start: 20100316

REACTIONS (3)
  - CHEST DISCOMFORT [None]
  - OROPHARYNGEAL DISCOMFORT [None]
  - RESPIRATORY DISTRESS [None]
